FAERS Safety Report 20832614 (Version 1)
Quarter: 2022Q2

REPORT INFORMATION
  Report Type: 
  Country: None (occurrence: None)
  Receive Date: 20220516
  Receipt Date: 20220516
  Transmission Date: 20220721
  Serious: No
  Sender: FDA-Public Use
  Company Number: LB-002147023-NVSC2021LB262490

PATIENT
  Weight: 100 kg

DRUGS (11)
  1. LUCENTIS [Suspect]
     Active Substance: RANIBIZUMAB
     Dosage: 20 MG/ML
     Dates: start: 20210312, end: 20210511
  2. LUCENTIS [Suspect]
     Active Substance: RANIBIZUMAB
     Dosage: 10 MG/ML
     Dates: start: 20210312
  3. LUCENTIS [Suspect]
     Active Substance: RANIBIZUMAB
     Dosage: SOLUTION FOR INJECTION
     Dates: start: 20210611
  4. LUCENTIS [Suspect]
     Active Substance: RANIBIZUMAB
     Dosage: UNK, (RIGHT EYE)
     Dates: start: 20220217
  5. LUCENTIS [Suspect]
     Active Substance: RANIBIZUMAB
     Dosage: UNK, (LEFT EYE)
     Dates: start: 20220209
  6. FENOFIBRATE [Concomitant]
     Active Substance: FENOFIBRATE
     Dosage: UNK
  7. ATACAND [Concomitant]
     Active Substance: CANDESARTAN CILEXETIL
     Dosage: UNK
  8. BISOPROLOL FUMARATE [Concomitant]
     Active Substance: BISOPROLOL FUMARATE
     Dosage: UNK
  9. GLUCOPHAGE [Concomitant]
     Active Substance: METFORMIN HYDROCHLORIDE
     Dosage: UNK
  10. JARDIANCE [Concomitant]
     Active Substance: EMPAGLIFLOZIN
     Dosage: UNK
  11. LASIX [Concomitant]
     Active Substance: FUROSEMIDE

REACTIONS (11)
  - Renal impairment [None]
  - Visual acuity reduced [None]
  - Angioedema [None]
  - Myelosuppression [None]
  - Renal disorder [None]
  - Vitreous floaters [None]
  - Blood disorder [None]
  - Generalised oedema [None]
  - Oedema peripheral [None]
  - Localised oedema [None]
  - Drug ineffective [None]

NARRATIVE: CASE EVENT DATE: 20210601
